FAERS Safety Report 24870627 (Version 1)
Quarter: 2025Q1

REPORT INFORMATION
  Report Type: Report from Study
  Country: DE (occurrence: DE)
  Receive Date: 20250121
  Receipt Date: 20250121
  Transmission Date: 20250409
  Serious: Yes (Other)
  Sender: RANBAXY
  Company Number: DE-SUN PHARMACEUTICAL INDUSTRIES LTD-2025R1-489971

PATIENT
  Sex: Male

DRUGS (2)
  1. PYRIDOXINE [Suspect]
     Active Substance: PYRIDOXINE
     Indication: Hyperoxaluria
     Dosage: 10 MILLIGRAM/KILOGRAM, DAILY
     Route: 065
  2. VALPROIC ACID [Suspect]
     Active Substance: VALPROIC ACID
     Indication: Hyperoxaluria
     Route: 065

REACTIONS (2)
  - Lithiasis [Unknown]
  - Nephrocalcinosis [Unknown]
